FAERS Safety Report 15075594 (Version 2)
Quarter: 2018Q4

REPORT INFORMATION
  Report Type: Report from Study
  Country: US (occurrence: US)
  Receive Date: 20180627
  Receipt Date: 20181001
  Transmission Date: 20190204
  Serious: Yes (Other)
  Sender: FDA-Public Use
  Company Number: US-BAYER-2018-065737

PATIENT
  Age: 66 Year
  Sex: Male
  Weight: 87.98 kg

DRUGS (20)
  1. NEXAVAR [Suspect]
     Active Substance: SORAFENIB
     Indication: HEPATOCELLULAR CARCINOMA
     Dosage: 400 MG, BID
     Route: 048
     Dates: start: 2018, end: 20180920
  2. DIAMOX SEQUELS [Concomitant]
     Active Substance: ACETAZOLAMIDE
     Dosage: 500 MG, BID
     Route: 048
  3. XALATAN [Concomitant]
     Active Substance: LATANOPROST
     Dosage: 1 DROP AT BEDTIME
  4. AUGMENTIN [Concomitant]
     Active Substance: AMOXICILLIN\CLAVULANATE POTASSIUM
     Dosage: TAKE ONE TABLET BY MOUTH EVERY 12 (TWELVE) HOURS
     Route: 048
     Dates: start: 20180626, end: 20180703
  5. MIRALAX [Concomitant]
     Active Substance: POLYETHYLENE GLYCOL 3350
  6. NEXAVAR [Suspect]
     Active Substance: SORAFENIB
     Indication: HEPATOCELLULAR CARCINOMA
     Dosage: 400 MG, QD
     Route: 048
     Dates: start: 20171215
  7. TRUSOPT [Concomitant]
     Active Substance: DORZOLAMIDE HYDROCHLORIDE
     Dosage: PLACE 1 DROP INTO BOTH EYES 2 (TWO) TIMES DAILY
  8. COSOPT [Concomitant]
     Active Substance: DORZOLAMIDE HYDROCHLORIDE\TIMOLOL MALEATE
     Dosage: PLACE 1 DROP INTO BOTH EYES 2 (TWO) TIMES DAILY
  9. ROXICODONE [Concomitant]
     Active Substance: OXYCODONE HYDROCHLORIDE
     Indication: PAIN
     Dosage: TAKE ONE TABLET (5 MG TOTAL) BY MOUTH EVERY 4 (FOUR) HOURS AS NEEDED
     Route: 048
     Dates: start: 20180626
  10. OXYCODONE [Concomitant]
     Active Substance: OXYCODONE
  11. NEXAVAR [Suspect]
     Active Substance: SORAFENIB
     Indication: HEPATOCELLULAR CARCINOMA
     Dosage: DAILY DOSE 600 MG
     Route: 048
     Dates: end: 20180617
  12. CYCLOGYL [Concomitant]
     Active Substance: CYCLOPENTOLATE HYDROCHLORIDE
     Dosage: PLACE ONE DROP INTO THE RIGHT EYE 4 (FOUR) TIMES DAILY
  13. ACULAR [Concomitant]
     Active Substance: KETOROLAC TROMETHAMINE
     Dosage: PLACE ONE DROP INTO THE RIGHT EYE 4 (FOUR) TIMES DAILY. 1 DROP RIGHT EYE 4 TIMES A DAY
  14. ZOFRAN [Concomitant]
     Active Substance: ONDANSETRON HYDROCHLORIDE
     Indication: NAUSEA
     Dosage: DISSOLVE ONE TO TWO TABLETS IN MOUTH EVERY 8 HOURS AS NEEDED
     Route: 048
  15. ADOXA [Concomitant]
     Active Substance: DOXYCYCLINE
     Dosage: DAILY DOSE 50 MG
     Route: 048
  16. K-DUR [Concomitant]
     Active Substance: POTASSIUM CHLORIDE
     Dosage: TAKE 20 MEQ BY MOUTH DAILY
     Route: 048
  17. PRED FORTE [Concomitant]
     Active Substance: PREDNISOLONE ACETATE
     Dosage: PLACE ONE DROP INTO THE RIGHT EYE 4 (FOUR) TIMES DAILY
  18. DOCUSATE SODIUM. [Concomitant]
     Active Substance: DOCUSATE SODIUM
     Dosage: 100 MG, BID (TAKE ONE CAPSULE (100 MG TOTAL) BY MOUTH 2 (TWO) TIMES DAILY)
     Route: 048
     Dates: start: 20180626, end: 20180706
  19. VIGAMOX [Concomitant]
     Active Substance: MOXIFLOXACIN HYDROCHLORIDE
     Dosage: PLACE ONE DROP INTO THE RIGHT EYE 4 (FOUR) TIMES DAILY
  20. PRED FORTE [Concomitant]
     Active Substance: PREDNISOLONE ACETATE
     Dosage: PLACE 1 DROP INTO THE LEFT EYE 3 (THREE) TIMES A DAY

REACTIONS (9)
  - Product availability issue [None]
  - Exercise tolerance decreased [None]
  - Radiotherapy to liver [None]
  - Product dose omission [Not Recovered/Not Resolved]
  - Erythema [Recovering/Resolving]
  - Groin infection [None]
  - Off label use [None]
  - Drug ineffective [None]
  - Diarrhoea [None]

NARRATIVE: CASE EVENT DATE: 20180625
